FAERS Safety Report 24139442 (Version 1)
Quarter: 2024Q3

REPORT INFORMATION
  Report Type: Other
  Country: CA (occurrence: CA)
  Receive Date: 20240726
  Receipt Date: 20240726
  Transmission Date: 20241016
  Serious: Yes (Other)
  Sender: APOTEX
  Company Number: CA-APOTEX-2023AP017937

PATIENT
  Sex: Male

DRUGS (2)
  1. LENALIDOMIDE [Suspect]
     Active Substance: LENALIDOMIDE
     Indication: Plasma cell myeloma
     Dosage: 10 MILLIGRAM, QD, FOR 21 DAYS
     Route: 048
     Dates: start: 20230630, end: 2023
  2. LENALIDOMIDE [Suspect]
     Active Substance: LENALIDOMIDE
     Dosage: 1 DOSAGE FORM, QD (21 DAYS TO ONE CAPSULE ONCE DAILY MONDAY - FRIDAY, NO WEEKEND DOSES FROM DAY 1-21
     Route: 048
     Dates: start: 2023

REACTIONS (3)
  - Cytopenia [Unknown]
  - Drug intolerance [Unknown]
  - Haematotoxicity [Unknown]

NARRATIVE: CASE EVENT DATE: 20230101
